FAERS Safety Report 6878622-8 (Version None)
Quarter: 2010Q3

REPORT INFORMATION
  Report Type: 
  Country: None (occurrence: None)
  Receive Date: 20100728
  Receipt Date: 20100714
  Transmission Date: 20110219
  Serious: Yes (Hospitalization)
  Sender: FDA-Public Use
  Company Number: A0866979A

PATIENT
  Age: 44 Year
  Sex: Female

DRUGS (7)
  1. AVANDIA [Suspect]
     Indication: DIABETES MELLITUS
     Dosage: 8MG PER DAY
     Dates: start: 20030101, end: 20070101
  2. HUMULIN R [Concomitant]
  3. PROZAC [Concomitant]
  4. ZOCOR [Concomitant]
  5. SYNTHROID [Concomitant]
  6. LOTREL [Concomitant]
  7. DYAZIDE [Concomitant]

REACTIONS (14)
  - AORTIC ARTERIOSCLEROSIS [None]
  - CARDIOMEGALY [None]
  - CARDIOVASCULAR DISORDER [None]
  - COUGH [None]
  - DYSPNOEA [None]
  - EJECTION FRACTION DECREASED [None]
  - GASTROOESOPHAGEAL REFLUX DISEASE [None]
  - HEART VALVE INCOMPETENCE [None]
  - LEFT VENTRICULAR DYSFUNCTION [None]
  - MITRAL VALVE DISEASE [None]
  - MITRAL VALVE INCOMPETENCE [None]
  - NASOPHARYNGITIS [None]
  - OEDEMA PERIPHERAL [None]
  - VENTRICULAR HYPOKINESIA [None]
